FAERS Safety Report 15722886 (Version 1)
Quarter: 2018Q4

REPORT INFORMATION
  Report Type: Spontaneous
  Country: US (occurrence: US)
  Receive Date: 20181214
  Receipt Date: 20181214
  Transmission Date: 20190205
  Serious: Yes (Other)
  Sender: FDA-Public Use
  Company Number: None

PATIENT
  Age: 77 Year
  Sex: Female
  Weight: 81 kg

DRUGS (24)
  1. OPMEPRAZOLE [Concomitant]
  2. SYNTHROID [Concomitant]
     Active Substance: LEVOTHYROXINE SODIUM
  3. COQ10 [Concomitant]
     Active Substance: UBIDECARENONE
  4. HYDROCHLOROTHIAZIDE AND LISINOPRIL [Concomitant]
     Active Substance: HYDROCHLOROTHIAZIDE\LISINOPRIL
  5. TRICOR [Concomitant]
     Active Substance: FENOFIBRATE
  6. SYMBICORT [Concomitant]
     Active Substance: BUDESONIDE\FORMOTEROL FUMARATE DIHYDRATE
  7. MYRBETRIQ [Concomitant]
     Active Substance: MIRABEGRON
  8. TOCOTRIENOL [Concomitant]
  9. FISH OIL [Concomitant]
     Active Substance: FISH OIL
  10. AREDS [Concomitant]
     Active Substance: MINERALS\VITAMINS
  11. LANTUS [Concomitant]
     Active Substance: INSULIN GLARGINE
  12. OLMOSARTEN [Concomitant]
  13. VITAMIN B12 [Concomitant]
     Active Substance: CYANOCOBALAMIN
  14. DULERA [Suspect]
     Active Substance: FORMOTEROL FUMARATE DIHYDRATE\MOMETASONE FUROATE
     Indication: ASTHMA
     Dosage: ?          OTHER STRENGTH:UNKNOWN;QUANTITY:2 PUFF(S);?
     Route: 055
  15. METFORMIN [Concomitant]
     Active Substance: METFORMIN HYDROCHLORIDE
  16. CINNAMON CR [Concomitant]
  17. MILK THISTLE [Concomitant]
     Active Substance: DIETARY SUPPLEMENT\HERBALS\MILK THISTLE
  18. B 100 [Concomitant]
  19. COLESTIPOL [Concomitant]
     Active Substance: COLESTIPOL
  20. PULMICORT TURBUHALER [Concomitant]
     Active Substance: BUDESONIDE
  21. VITAMINS A D E K C MG [Concomitant]
  22. BORAGE OIL [Concomitant]
     Active Substance: BORAGE OIL
  23. DULOXETINE. [Concomitant]
     Active Substance: DULOXETINE
  24. ALA [Concomitant]

REACTIONS (3)
  - Cardiac disorder [None]
  - Aortic stenosis [None]
  - Dyspnoea [None]

NARRATIVE: CASE EVENT DATE: 20180315
